FAERS Safety Report 12637016 (Version 1)
Quarter: 2016Q3

REPORT INFORMATION
  Report Type: Spontaneous
  Country: US (occurrence: US)
  Receive Date: 20160809
  Receipt Date: 20160809
  Transmission Date: 20161109
  Serious: No
  Sender: FDA-Public Use
  Company Number: US-BEH-2016072156

PATIENT
  Sex: Female
  Weight: 74.83 kg

DRUGS (20)
  1. ALEVE [Concomitant]
     Active Substance: NAPROXEN SODIUM
  2. STERILE WATER [Concomitant]
     Active Substance: WATER
  3. ZEMAIRA [Suspect]
     Active Substance: .ALPHA.1-PROTEINASE INHIBITOR HUMAN
     Indication: ALPHA-1 ANTI-TRYPSIN DEFICIENCY
     Dosage: 60 MG, QW
     Route: 042
     Dates: start: 20140114
  4. HEPARIN [Concomitant]
     Active Substance: HEPARIN SODIUM
  5. LMX                                /00033401/ [Concomitant]
  6. IBUPROFEN. [Concomitant]
     Active Substance: IBUPROFEN
  7. VITAMIN D                          /00107901/ [Concomitant]
     Active Substance: ERGOCALCIFEROL
  8. SPIRIVA [Concomitant]
     Active Substance: TIOTROPIUM BROMIDE MONOHYDRATE
  9. SODIUM CHLORIDE. [Concomitant]
     Active Substance: SODIUM CHLORIDE
  10. VITAMIN B12 [Concomitant]
     Active Substance: CYANOCOBALAMIN
  11. URO                                /00073802/ [Concomitant]
  12. METHENAMINE [Concomitant]
     Active Substance: METHENAMINE
  13. CLARIN DUO [Concomitant]
  14. LORAZEPAM. [Concomitant]
     Active Substance: LORAZEPAM
  15. ROBITUSSIN (GUAIFENESIN) [Concomitant]
     Active Substance: GUAIFENESIN
  16. PRILOSEC [Concomitant]
     Active Substance: OMEPRAZOLE MAGNESIUM
  17. LEXAPRO [Concomitant]
     Active Substance: ESCITALOPRAM OXALATE
  18. DIPHENHYDRAMINE. [Concomitant]
     Active Substance: DIPHENHYDRAMINE
  19. AZO [Concomitant]
     Active Substance: PHENAZOPYRIDINE HYDROCHLORIDE
  20. VENTOLIN [Concomitant]
     Active Substance: ALBUTEROL SULFATE

REACTIONS (3)
  - Vomiting [Unknown]
  - Nausea [Unknown]
  - Dizziness [Unknown]
